FAERS Safety Report 7769359-1 (Version None)
Quarter: 2011Q3

REPORT INFORMATION
  Report Type: 
  Country: None (occurrence: None)
  Receive Date: 20110922
  Receipt Date: 20110318
  Transmission Date: 20111222
  Serious: No
  Sender: FDA-Public Use
  Company Number: US-ASTRAZENECA-2007UW15440

PATIENT
  Sex: Male
  Weight: 103.4 kg

DRUGS (2)
  1. SEROQUEL [Suspect]
     Indication: SLEEP DISORDER
     Dosage: 25 MG TO 100 MG
     Route: 048
     Dates: start: 20050304, end: 20070208
  2. SEROQUEL [Suspect]
     Indication: DEPRESSION
     Dosage: 25 MG TO 100 MG
     Route: 048
     Dates: start: 20050304, end: 20070208

REACTIONS (4)
  - BACK PAIN [None]
  - TYPE 2 DIABETES MELLITUS [None]
  - ARTHRALGIA [None]
  - OBESITY [None]
